FAERS Safety Report 4357276-9 (Version None)
Quarter: 2004Q2

REPORT INFORMATION
  Report Type: 
  Country: None (occurrence: None)
  Receive Date: 20040513
  Receipt Date: 20040504
  Transmission Date: 20050107
  Serious: Yes (Disabling)
  Sender: FDA-Public Use
  Company Number: PHFR2004GB02022

PATIENT
  Age: 54 Year
  Sex: Female

DRUGS (2)
  1. LAMISIL [Suspect]
     Indication: NAIL TINEA
     Dosage: 1 DAILY
     Route: 048
     Dates: end: 20040114
  2. CARBAMAZEPINE [Concomitant]
     Dosage: UNK, UNK
     Route: 048

REACTIONS (4)
  - ANOREXIA [None]
  - APTYALISM [None]
  - DIFFICULTY IN WALKING [None]
  - WEIGHT DECREASED [None]
